FAERS Safety Report 5217229-5 (Version None)
Quarter: 2007Q1

REPORT INFORMATION
  Report Type: 
  Country: None (occurrence: None)
  Receive Date: 20070122
  Receipt Date: 20070122
  Transmission Date: 20070707
  Serious: Yes (Hospitalization)
  Sender: FDA-Public Use
  Company Number: None

PATIENT
  Age: 63 Year
  Sex: Male
  Weight: 75.2971 kg

DRUGS (4)
  1. TERAZOSIN HCL [Suspect]
     Dosage: 1 MG PO QHS
     Route: 048
  2. TRAZODONE HCL [Suspect]
     Dosage: 150 MG PO QHS
     Route: 048
  3. AMITRIPTYLINE HCL [Suspect]
     Dosage: 100 MG PO QHS
     Route: 048
  4. QUETIAPINE FUMARATE [Suspect]
     Dosage: 100 MG QAM + 400 MG QHS

REACTIONS (3)
  - DIZZINESS [None]
  - FALL [None]
  - SYNCOPE [None]
